FAERS Safety Report 9095339 (Version 2)
Quarter: 2013Q1

REPORT INFORMATION
  Report Type: Spontaneous
  Country: US (occurrence: US)
  Receive Date: 20130201
  Receipt Date: 20130321
  Transmission Date: 20140127
  Serious: No
  Sender: FDA-Public Use
  Company Number: US-009507513-1301USA014640

PATIENT
  Age: 51 Year
  Sex: Male

DRUGS (1)
  1. PROPECIA [Suspect]
     Indication: ANDROGENETIC ALOPECIA
     Dosage: UNK
     Route: 048
     Dates: start: 20010904, end: 20071114

REACTIONS (4)
  - Cognitive disorder [Not Recovered/Not Resolved]
  - Erectile dysfunction [Unknown]
  - Sexual dysfunction [Not Recovered/Not Resolved]
  - Gynaecomastia [Unknown]
